FAERS Safety Report 20935364 (Version 1)
Quarter: 2022Q2

REPORT INFORMATION
  Report Type: Spontaneous
  Country: US (occurrence: US)
  Receive Date: 20220609
  Receipt Date: 20220609
  Transmission Date: 20220721
  Serious: Yes (Other)
  Sender: FDA-Public Use
  Company Number: US-drreddys-LIT/USA/22/0150842

PATIENT
  Age: 1 Year
  Sex: Female

DRUGS (6)
  1. SIROLIMUS [Suspect]
     Active Substance: SIROLIMUS
     Indication: Gorham^s disease
     Dates: start: 2014
  2. SIROLIMUS [Suspect]
     Active Substance: SIROLIMUS
  3. ZOLEDRONIC ACID [Suspect]
     Active Substance: ZOLEDRONIC ACID
     Indication: Gorham^s disease
     Dates: end: 2016
  4. ZOLEDRONIC ACID [Suspect]
     Active Substance: ZOLEDRONIC ACID
  5. PAMIDRONIC ACID [Suspect]
     Active Substance: PAMIDRONIC ACID
     Indication: Gorham^s disease
     Dates: start: 2014
  6. VINCRISTINE [Concomitant]
     Active Substance: VINCRISTINE
     Indication: Product used for unknown indication

REACTIONS (6)
  - Hypertriglyceridaemia [Recovered/Resolved]
  - Mucosal inflammation [Recovered/Resolved]
  - Bone disorder [Recovering/Resolving]
  - Disease progression [Unknown]
  - Blood parathyroid hormone increased [Unknown]
  - Drug ineffective [Unknown]
